FAERS Safety Report 7999589-5 (Version None)
Quarter: 2011Q4

REPORT INFORMATION
  Report Type: 
  Country: None (occurrence: None)
  Receive Date: 20111221
  Receipt Date: 20111213
  Transmission Date: 20120403
  Serious: Yes (Hospitalization)
  Sender: FDA-Public Use
  Company Number: JP-MERCK-1111USA00186

PATIENT
  Age: 71 Year
  Sex: Male

DRUGS (2)
  1. LANSOPRAZOLE [Concomitant]
     Route: 065
  2. JANUVIA [Suspect]
     Indication: TYPE 2 DIABETES MELLITUS
     Route: 048
     Dates: start: 20100201, end: 20110820

REACTIONS (1)
  - CHOLELITHIASIS [None]
